FAERS Safety Report 22664615 (Version 1)
Quarter: 2023Q2

REPORT INFORMATION
  Report Type: Spontaneous
  Country: US (occurrence: None)
  Receive Date: 20230630
  Receipt Date: 20230630
  Transmission Date: 20230722
  Serious: Yes (Disabling)
  Sender: FDA-Public Use
  Company Number: None

PATIENT
  Age: 54 Year
  Sex: Male
  Weight: 87.75 kg

DRUGS (6)
  1. KESIMPTA [Suspect]
     Active Substance: OFATUMUMAB
     Indication: Multiple sclerosis
     Dosage: OTHER QUANTITY : 1 INJECTION(S);?OTHER FREQUENCY : MONTHLY;?
     Route: 030
     Dates: start: 20230526
  2. AMLODIPINE BESYLATE [Concomitant]
     Active Substance: AMLODIPINE BESYLATE
  3. NEURONTIN [Concomitant]
     Active Substance: GABAPENTIN
  4. VITAMIN D2 [Concomitant]
     Active Substance: ERGOCALCIFEROL
  5. SIMVASTATIN [Concomitant]
     Active Substance: SIMVASTATIN
  6. TYLENOL [Concomitant]
     Active Substance: ACETAMINOPHEN

REACTIONS (1)
  - Multiple sclerosis [None]

NARRATIVE: CASE EVENT DATE: 20230624
